FAERS Safety Report 7358327-X (Version None)
Quarter: 2011Q1

REPORT INFORMATION
  Report Type: 
  Country: None (occurrence: None)
  Receive Date: 20110314
  Receipt Date: 20110314
  Transmission Date: 20110831
  Serious: Yes (Death, Life-Threatening, Hospitalization, Disabling, Congenital Anomaly, Other)
  Sender: FDA-Public Use
  Company Number: None

PATIENT
  Age: 28 Year
  Sex: Female
  Weight: 66.2252 kg

DRUGS (1)
  1. NITROFURANTOIN (MONOHYDRATE/MACROCRYSTALS) [Suspect]
     Indication: URINARY TRACT INFECTION
     Dosage: 100MG 1 CAPSULE 2X DAY PO
     Route: 048
     Dates: start: 20110304, end: 20110309

REACTIONS (6)
  - ROAD TRAFFIC ACCIDENT [None]
  - MENTAL IMPAIRMENT [None]
  - IRRITABILITY [None]
  - CONFUSIONAL STATE [None]
  - MALAISE [None]
  - DEPRESSION [None]
